FAERS Safety Report 25760759 (Version 1)
Quarter: 2025Q3

REPORT INFORMATION
  Report Type: Spontaneous
  Country: JP (occurrence: JP)
  Receive Date: 20250904
  Receipt Date: 20250904
  Transmission Date: 20251021
  Serious: Yes (Other)
  Sender: PFIZER
  Company Number: JP-GENMAB-2025-02580

PATIENT
  Age: 7 Decade
  Sex: Female
  Weight: 57 kg

DRUGS (1)
  1. TIVDAK [Suspect]
     Active Substance: TISOTUMAB VEDOTIN-TFTV
     Indication: Cervix carcinoma recurrent
     Dosage: 2 MG/KG, EVERY 3 WEEKS
     Route: 042
     Dates: start: 20250707, end: 2025

REACTIONS (1)
  - Cervix carcinoma recurrent [Not Recovered/Not Resolved]

NARRATIVE: CASE EVENT DATE: 20250825
